FAERS Safety Report 5397158-7 (Version None)
Quarter: 2007Q3

REPORT INFORMATION
  Report Type: 
  Country: None (occurrence: None)
  Receive Date: 20070725
  Receipt Date: 20070720
  Transmission Date: 20080115
  Serious: Yes (Hospitalization)
  Sender: FDA-Public Use
  Company Number: US-BAXTER-2007BH006494

PATIENT
  Age: 45 Year
  Sex: Female
  Weight: 74 kg

DRUGS (1)
  1. REGLAN [Suspect]
     Indication: NAUSEA
     Route: 042
     Dates: start: 20070129, end: 20070129

REACTIONS (9)
  - ANXIETY [None]
  - ASTHENIA [None]
  - DECREASED APPETITE [None]
  - INSOMNIA [None]
  - NEURALGIA [None]
  - PAIN [None]
  - PAROSMIA [None]
  - RESTLESSNESS [None]
  - WEIGHT DECREASED [None]
